FAERS Safety Report 6556701-2 (Version None)
Quarter: 2010Q1

REPORT INFORMATION
  Report Type: 
  Country: None (occurrence: None)
  Receive Date: 20100128
  Receipt Date: 20100120
  Transmission Date: 20100710
  Serious: Yes (Hospitalization)
  Sender: FDA-Public Use
  Company Number: BR-BAXTER-2010BH000738

PATIENT
  Age: 39 Year
  Sex: Female
  Weight: 64 kg

DRUGS (5)
  1. ENDOXAN BAXTER [Suspect]
     Indication: TAKAYASU'S ARTERITIS
     Route: 048
     Dates: start: 20091231, end: 20100107
  2. MAREVAN ^BRITISH DRUG HOUSES^ [Concomitant]
     Indication: CARDIAC DISORDER
     Route: 048
  3. FERROUS SULFATE TAB [Concomitant]
     Indication: ANAEMIA
     Route: 048
  4. FOLIC ACID [Concomitant]
     Indication: DRUG USE FOR UNKNOWN INDICATION
     Route: 048
  5. ASCORBIC ACID [Concomitant]
     Indication: DRUG USE FOR UNKNOWN INDICATION
     Route: 048

REACTIONS (6)
  - CHEST PAIN [None]
  - GASTRITIS [None]
  - HAEMATEMESIS [None]
  - HAEMORRHAGE [None]
  - HEADACHE [None]
  - NAUSEA [None]
